FAERS Safety Report 8390805-7 (Version None)
Quarter: 2012Q2

REPORT INFORMATION
  Report Type: 
  Country: None (occurrence: None)
  Receive Date: 20120529
  Receipt Date: 20120518
  Transmission Date: 20120825
  Serious: Yes (Other)
  Sender: FDA-Public Use
  Company Number: US-ASTELLAS-2012US004832

PATIENT
  Sex: Female
  Weight: 56 kg

DRUGS (5)
  1. HYDROMORPHONE HCL [Concomitant]
     Indication: PRODUCT USED FOR UNKNOWN INDICATION
     Dosage: UNK
     Route: 065
  2. PROCHLORPERAZINE [Concomitant]
     Indication: PRODUCT USED FOR UNKNOWN INDICATION
     Dosage: UNK
     Route: 065
  3. MIRTAZAPINE [Concomitant]
     Indication: PRODUCT USED FOR UNKNOWN INDICATION
     Dosage: UNK
     Route: 065
  4. FOLIC ACID [Concomitant]
     Indication: PRODUCT USED FOR UNKNOWN INDICATION
     Dosage: UNK
     Route: 065
  5. ERLOTINIB HYDROCHLORIDE [Suspect]
     Indication: LUNG CARCINOMA CELL TYPE UNSPECIFIED STAGE 0
     Dosage: 150 MG, UID/QD
     Route: 048
     Dates: start: 20120324

REACTIONS (1)
  - PLEURAL EFFUSION [None]
